FAERS Safety Report 8546733-7 (Version None)
Quarter: 2012Q3

REPORT INFORMATION
  Report Type: 
  Country: None (occurrence: None)
  Receive Date: 20120727
  Receipt Date: 20120131
  Transmission Date: 20120928
  Serious: No
  Sender: FDA-Public Use
  Company Number: US-ASTRAZENECA-2012SE06988

PATIENT
  Sex: Male

DRUGS (2)
  1. SEROQUEL [Suspect]
     Indication: DEPRESSION
     Dosage: 100 MG, 50 MG AND 700 MG
     Route: 048
  2. SEROQUEL [Suspect]
     Indication: ANXIETY
     Dosage: 100 MG, 50 MG AND 700 MG
     Route: 048

REACTIONS (3)
  - DRUG DOSE OMISSION [None]
  - MALAISE [None]
  - WITHDRAWAL SYNDROME [None]
